FAERS Safety Report 8216638-X (Version None)
Quarter: 2012Q1

REPORT INFORMATION
  Report Type: 
  Country: None (occurrence: None)
  Receive Date: 20120316
  Receipt Date: 20120309
  Transmission Date: 20120608
  Serious: Yes (Hospitalization)
  Sender: FDA-Public Use
  Company Number: FI-B.I. PHARMACEUTICALS,INC./RIDGEFIELD-2012-SW-00202SF

PATIENT
  Sex: Male

DRUGS (2)
  1. MOBIC [Suspect]
     Indication: ARTHRALGIA
     Dosage: 15 MG
     Route: 048
     Dates: start: 20120115, end: 20120213
  2. GLUCOSAMIN ORION [Concomitant]
     Indication: OSTEOARTHRITIS
     Dosage: 1200 MG
     Route: 048
     Dates: start: 20111109

REACTIONS (8)
  - CEREBRAL INFARCTION [None]
  - DYSARTHRIA [None]
  - SENSORY LOSS [None]
  - GRIP STRENGTH DECREASED [None]
  - VIITH NERVE PARALYSIS [None]
  - DIZZINESS [None]
  - HYPOAESTHESIA [None]
  - CLUMSINESS [None]
